FAERS Safety Report 16706324 (Version 2)
Quarter: 2019Q3

REPORT INFORMATION
  Report Type: Report from Study
  Country: NL (occurrence: NL)
  Receive Date: 20190815
  Receipt Date: 20190820
  Transmission Date: 20191004
  Serious: Yes (Death, Hospitalization)
  Sender: FDA-Public Use
  Company Number: PHHY2019NL188225

PATIENT
  Age: 78 Year
  Sex: Male

DRUGS (1)
  1. ZOMETA [Suspect]
     Active Substance: ZOLEDRONIC ACID
     Indication: PRODUCT USED FOR UNKNOWN INDICATION
     Dosage: 4 MG/DL, QMO
     Route: 042
     Dates: start: 20190715

REACTIONS (6)
  - Nephrolithiasis [Unknown]
  - Vomiting [Unknown]
  - Death [Fatal]
  - Hypotension [Unknown]
  - Sepsis [Unknown]
  - Confusional state [Unknown]

NARRATIVE: CASE EVENT DATE: 20190813
